FAERS Safety Report 11056000 (Version 1)
Quarter: 2015Q2

REPORT INFORMATION
  Report Type: Spontaneous
  Country: US (occurrence: US)
  Receive Date: 20150422
  Receipt Date: 20150422
  Transmission Date: 20150821
  Serious: Yes (Hospitalization)
  Sender: FDA-Public Use
  Company Number: US-ANACOR-2015ANA00023

PATIENT
  Sex: Female

DRUGS (3)
  1. KERYDIN [Suspect]
     Active Substance: TAVABOROLE
     Indication: ONYCHOMYCOSIS
     Dosage: UNK, 1X/DAY
     Dates: start: 201503
  2. HUMIRA [Concomitant]
     Active Substance: ADALIMUMAB
  3. UNSPECIFIED CONCOMITANT MEDICATION(S) [Concomitant]

REACTIONS (1)
  - Infection [Unknown]

NARRATIVE: CASE EVENT DATE: 2015
